FAERS Safety Report 25195526 (Version 2)
Quarter: 2025Q4

REPORT INFORMATION
  Report Type: Spontaneous
  Country: US (occurrence: US)
  Receive Date: 20250415
  Receipt Date: 20251207
  Transmission Date: 20260117
  Serious: No
  Sender: SANOFI AVENTIS
  Company Number: US-SA-2025SA103188

PATIENT
  Age: 90 Year
  Sex: Male

DRUGS (2)
  1. DUPIXENT [Suspect]
     Active Substance: DUPILUMAB
     Indication: Dermatitis atopic
     Dosage: 300 MG, QOW
     Route: 058
     Dates: start: 202410
  2. DUPIXENT [Suspect]
     Active Substance: DUPILUMAB
     Indication: Eczema

REACTIONS (5)
  - Eczema [Unknown]
  - Pruritus [Not Recovered/Not Resolved]
  - Skin swelling [Unknown]
  - Product administered at inappropriate site [Unknown]
  - Product prescribing issue [Unknown]

NARRATIVE: CASE EVENT DATE: 20241001
